FAERS Safety Report 13048346 (Version 2)
Quarter: 2016Q4

REPORT INFORMATION
  Report Type: Report from Study
  Country: IL (occurrence: IL)
  Receive Date: 20161221
  Receipt Date: 20161222
  Transmission Date: 20170207
  Serious: Yes (Hospitalization)
  Sender: FDA-Public Use
  Company Number: IL-ROCHE-1863827

PATIENT
  Age: 61 Year
  Sex: Male
  Weight: 83 kg

DRUGS (6)
  1. CARTIA (ISRAEL) [Concomitant]
     Indication: MYOCARDIAL ISCHAEMIA
     Route: 048
     Dates: start: 2000
  2. LOSEC [Concomitant]
     Active Substance: OMEPRAZOLE
     Route: 065
     Dates: start: 1998
  3. COBIMETINIB [Suspect]
     Active Substance: COBIMETINIB
     Indication: LUNG NEOPLASM MALIGNANT
     Route: 048
     Dates: start: 20161019, end: 20161120
  4. FUSID (ISRAEL) [Concomitant]
     Indication: HYPERTENSION
     Route: 048
     Dates: start: 2000
  5. VEMURAFENIB [Suspect]
     Active Substance: VEMURAFENIB
     Indication: LUNG NEOPLASM MALIGNANT
     Route: 048
     Dates: start: 20161019, end: 20161120
  6. PREDNISONE. [Concomitant]
     Active Substance: PREDNISONE
     Indication: MYOPATHY
     Route: 048
     Dates: start: 1998

REACTIONS (5)
  - Pneumonia [Recovered/Resolved]
  - Off label use [Unknown]
  - Hepatic enzyme increased [Recovered/Resolved]
  - Muscle necrosis [Not Recovered/Not Resolved]
  - Blood creatine phosphokinase increased [Recovered/Resolved]

NARRATIVE: CASE EVENT DATE: 20161120
